FAERS Safety Report 15430718 (Version 8)
Quarter: 2020Q1

REPORT INFORMATION
  Report Type: Spontaneous
  Country: JP (occurrence: JP)
  Receive Date: 20180926
  Receipt Date: 20200214
  Transmission Date: 20200409
  Serious: Yes (Death, Life-Threatening, Hospitalization, Disabling, Other)
  Sender: FDA-Public Use
  Company Number: JP-ACTELION-A-CH2017-153879

PATIENT
  Age: 78 Year
  Sex: Female
  Weight: 37 kg

DRUGS (40)
  1. UPTRAVI [Suspect]
     Active Substance: SELEXIPAG
     Dosage: 1 MG, BID
     Route: 048
     Dates: start: 20180126, end: 20180329
  2. ADCIRCA [Suspect]
     Active Substance: TADALAFIL
     Dosage: 20 MG, QD
     Route: 048
     Dates: start: 20180629, end: 20180823
  3. SPIRONOLACTONE. [Suspect]
     Active Substance: SPIRONOLACTONE
     Indication: PLEURAL EFFUSION
  4. OPSUMIT [Suspect]
     Active Substance: MACITENTAN
     Indication: PULMONARY ARTERIAL HYPERTENSION
     Dosage: 10 MG, QD
     Route: 048
     Dates: start: 20160716
  5. UPTRAVI [Suspect]
     Active Substance: SELEXIPAG
     Dosage: 1.6 MG, BID
     Route: 048
     Dates: start: 20181207, end: 20190206
  6. ADCIRCA [Suspect]
     Active Substance: TADALAFIL
     Dosage: 20 MG, BID
     Route: 048
     Dates: start: 20180824
  7. CARELOAD [Concomitant]
     Active Substance: BERAPROST SODIUM
  8. HEPARIN SODIUM. [Concomitant]
     Active Substance: HEPARIN SODIUM
     Dosage: 100 IU, QD
     Dates: start: 20180626, end: 20180627
  9. POTASSIUM ASPARTATE [Concomitant]
     Active Substance: POTASSIUM ASPARTATE
     Indication: HYPOKALAEMIA
     Dosage: 10 MEQ, QD
     Dates: start: 20181227, end: 20181228
  10. UPTRAVI [Suspect]
     Active Substance: SELEXIPAG
     Dosage: 0.4 MG, BID
     Route: 048
     Dates: start: 20170310, end: 20170323
  11. LASIX [Suspect]
     Active Substance: FUROSEMIDE
     Indication: PLEURAL EFFUSION
  12. E KEPPRA [Suspect]
     Active Substance: LEVETIRACETAM
     Indication: SUBDURAL HAEMATOMA
     Dosage: 500 MG, QD
     Route: 042
     Dates: start: 20180617, end: 20180618
  13. LOPEMIN [Concomitant]
     Indication: DIARRHOEA
     Dosage: 1 MG, QD
     Dates: start: 20170915
  14. DOBUPUM [Concomitant]
     Active Substance: DOBUTAMINE HYDROCHLORIDE
     Indication: CARDIAC FAILURE
     Dosage: 1 DF, QD
     Dates: start: 20180621
  15. UPTRAVI [Suspect]
     Active Substance: SELEXIPAG
     Dosage: 0.6 MG, BID
     Route: 048
     Dates: start: 20170324, end: 20180406
  16. ADCIRCA [Suspect]
     Active Substance: TADALAFIL
     Indication: PULMONARY ARTERIAL HYPERTENSION
     Dosage: 20 MG, BID
     Route: 048
     Dates: start: 20161118, end: 20180628
  17. FUROSEMIDE. [Suspect]
     Active Substance: FUROSEMIDE
     Indication: ASCITES
  18. UPTRAVI [Suspect]
     Active Substance: SELEXIPAG
     Dosage: 1.2 MG, QD
     Route: 048
     Dates: start: 20180330, end: 20180830
  19. LASIX [Suspect]
     Active Substance: FUROSEMIDE
     Indication: RIGHT VENTRICULAR FAILURE
     Dosage: 40 MG, QD
     Route: 048
     Dates: start: 20170113, end: 20180619
  20. SPIRONOLACTONE. [Suspect]
     Active Substance: SPIRONOLACTONE
     Indication: RIGHT VENTRICULAR FAILURE
     Dosage: 25 MG, QD
     Route: 048
     Dates: start: 20161118, end: 20180810
  21. SPIRONOLACTONE. [Suspect]
     Active Substance: SPIRONOLACTONE
     Indication: ASCITES
  22. SELARA [Concomitant]
     Active Substance: EPLERENONE
     Indication: HYPERTENSION
  23. LASIX [Suspect]
     Active Substance: FUROSEMIDE
     Indication: ASCITES
  24. FUROSEMIDE. [Suspect]
     Active Substance: FUROSEMIDE
     Indication: PLEURAL EFFUSION
     Dosage: 10 MG, QD
     Route: 065
     Dates: start: 20180617
  25. AMLODIPINE [Concomitant]
     Active Substance: AMLODIPINE BESYLATE
     Indication: HYPERTENSION
     Dosage: 5 MG, QD
  26. BAYASPIRIN [Concomitant]
     Active Substance: ASPIRIN
     Dosage: 100 MG, QD
     Dates: end: 20180617
  27. REVATIO [Concomitant]
     Active Substance: SILDENAFIL CITRATE
  28. OLMETEC [Concomitant]
     Active Substance: OLMESARTAN MEDOXOMIL
     Indication: HYPERTENSION
     Dosage: 10 MG, QD
     Dates: start: 20180110
  29. CEFAZOLIN NA [Concomitant]
     Active Substance: CEFAZOLIN SODIUM
     Indication: PYREXIA
     Dosage: 1 G, QD
     Dates: start: 20180617, end: 20180619
  30. REMIFENTANIL [Concomitant]
     Active Substance: REMIFENTANIL
     Dosage: 2 MG, QD
     Dates: start: 20180618, end: 20180618
  31. UPTRAVI [Suspect]
     Active Substance: SELEXIPAG
     Dosage: 1 MG, BID
     Route: 048
     Dates: start: 20180831, end: 20181206
  32. OXYGEN. [Concomitant]
     Active Substance: OXYGEN
  33. PREDONINE [Concomitant]
     Active Substance: PREDNISOLONE
     Indication: SCLERODERMA
     Dosage: UNK
     Dates: start: 20181208, end: 20181220
  34. UPTRAVI [Suspect]
     Active Substance: SELEXIPAG
     Indication: PULMONARY ARTERIAL HYPERTENSION
     Dosage: 0.2 MG, BID
     Route: 048
     Dates: start: 20170224, end: 20170309
  35. UPTRAVI [Suspect]
     Active Substance: SELEXIPAG
     Dosage: 0.8 MG, BID
     Route: 048
     Dates: start: 20170407, end: 20180125
  36. E KEPPRA [Suspect]
     Active Substance: LEVETIRACETAM
     Dosage: 500 MG, QD
     Route: 042
     Dates: start: 20180619, end: 20180622
  37. FAMOTIDINE. [Concomitant]
     Active Substance: FAMOTIDINE
     Dosage: 20 MG, QD
     Dates: start: 20180617, end: 20180617
  38. TAKEPRON [Concomitant]
     Active Substance: LANSOPRAZOLE
     Dosage: 300 MG, QD
     Dates: start: 20180617, end: 20180618
  39. CEFAZOLIN NA [Concomitant]
     Active Substance: CEFAZOLIN SODIUM
     Dosage: 1 G, QD
     Dates: start: 20180728, end: 20180806
  40. FENTANYL. [Concomitant]
     Active Substance: FENTANYL
     Dosage: 0.1 MG, QD
     Dates: start: 20180618, end: 20180620

REACTIONS (39)
  - Brain herniation [Recovered/Resolved]
  - Melaena [Recovered/Resolved]
  - Craniotomy [Recovered/Resolved]
  - Chronic gastritis [Recovering/Resolving]
  - Productive cough [Unknown]
  - Condition aggravated [Fatal]
  - Hypoxia [Recovered/Resolved]
  - Brain natriuretic peptide increased [Recovering/Resolving]
  - Iron deficiency anaemia [Recovering/Resolving]
  - Treatment noncompliance [Unknown]
  - Fall [Unknown]
  - Oxygen saturation abnormal [Recovering/Resolving]
  - Pneumonia aspiration [Unknown]
  - Blood pressure abnormal [Recovering/Resolving]
  - Hypokalaemia [Unknown]
  - Haemoptysis [Recovered/Resolved]
  - Pulmonary arterial hypertension [Fatal]
  - Cardiac failure [Recovering/Resolving]
  - Headache [Unknown]
  - Hypotension [Recovered/Resolved]
  - Ascites [Unknown]
  - Aortic aneurysm [Not Recovered/Not Resolved]
  - Right ventricular failure [Recovered/Resolved]
  - Pleural effusion [Unknown]
  - Pneumonia [Recovered/Resolved]
  - Diarrhoea [Unknown]
  - Depression [Unknown]
  - Primary biliary cholangitis [Unknown]
  - Subdural haematoma [Recovered/Resolved]
  - Tracheostomy [Unknown]
  - Nephrogenic anaemia [Unknown]
  - Renal impairment [Recovered/Resolved]
  - Insomnia [Unknown]
  - Urinary tract infection [Recovered/Resolved]
  - Pericardial effusion [Recovered/Resolved]
  - Pancytopenia [Recovering/Resolving]
  - Platelet count decreased [Recovering/Resolving]
  - Pyrexia [Recovered/Resolved]
  - Hepatic enzyme increased [Recovered/Resolved]

NARRATIVE: CASE EVENT DATE: 20170113
